FAERS Safety Report 10037020 (Version 1)
Quarter: 2014Q1

REPORT INFORMATION
  Report Type: Spontaneous
  Country: US (occurrence: US)
  Receive Date: 20140326
  Receipt Date: 20140326
  Transmission Date: 20141002
  Serious: No
  Sender: FDA-Public Use
  Company Number: US-BIOGENIDEC-2014BI026775

PATIENT
  Sex: Male

DRUGS (13)
  1. TECFIDERA [Suspect]
     Indication: MULTIPLE SCLEROSIS
     Route: 048
     Dates: start: 201302
  2. TECFIDERA [Suspect]
     Indication: MULTIPLE SCLEROSIS
     Route: 048
     Dates: end: 201403
  3. AMLODIPINE BESYLATE [Concomitant]
  4. BACLOFEN [Concomitant]
  5. CITALOPRAM HBR [Concomitant]
  6. PROBIOTIC FORMULA 1 OB CEL [Concomitant]
  7. VITAMIN B COMPLEX [Concomitant]
  8. FISH OIL 340-100 [Concomitant]
  9. GABAPENTIN [Concomitant]
  10. METOPROLOL TARTRATE [Concomitant]
  11. NEXIUM [Concomitant]
  12. TROSPIUM CHLORIDE [Concomitant]
  13. VITAMIN D [Concomitant]

REACTIONS (3)
  - Flatulence [Unknown]
  - Flushing [Unknown]
  - Dyspepsia [Unknown]
